FAERS Safety Report 9315674 (Version 2)
Quarter: 2013Q3

REPORT INFORMATION
  Report Type: Spontaneous
  Country: JP (occurrence: JP)
  Receive Date: 20130529
  Receipt Date: 20130801
  Transmission Date: 20140515
  Serious: No
  Sender: FDA-Public Use
  Company Number: JP-ELI_LILLY_AND_COMPANY-JP201305005669

PATIENT
  Sex: Female

DRUGS (1)
  1. FORTEO [Suspect]
     Route: 058

REACTIONS (3)
  - Incorrect product storage [Recovered/Resolved]
  - Feeling abnormal [Unknown]
  - Constipation [Not Recovered/Not Resolved]
